FAERS Safety Report 19671071 (Version 1)
Quarter: 2021Q3

REPORT INFORMATION
  Report Type: Spontaneous
  Country: US (occurrence: US)
  Receive Date: 20210806
  Receipt Date: 20210806
  Transmission Date: 20211014
  Serious: No
  Sender: FDA-Public Use
  Company Number: US-PFIZER INC-2021847674

PATIENT
  Age: 47 Year
  Sex: Female
  Weight: 102.06 kg

DRUGS (2)
  1. FLUCONAZOLE. [Concomitant]
     Active Substance: FLUCONAZOLE
     Indication: CANDIDA INFECTION
  2. PREMPRO [Suspect]
     Active Substance: ESTROGENS, CONJUGATED\MEDROXYPROGESTERONE ACETATE
     Indication: MENOPAUSAL SYMPTOMS
     Dosage: 1 DF, DAILY
     Route: 048
     Dates: start: 20210512

REACTIONS (6)
  - Menstrual disorder [Unknown]
  - Menstruation delayed [Unknown]
  - Oropharyngeal pain [Not Recovered/Not Resolved]
  - Menstruation irregular [Unknown]
  - Intermenstrual bleeding [Unknown]
  - Feeling hot [Unknown]

NARRATIVE: CASE EVENT DATE: 20210705
